FAERS Safety Report 4470756-0 (Version None)
Quarter: 2004Q4

REPORT INFORMATION
  Report Type: 
  Country: None (occurrence: None)
  Receive Date: 20041011
  Receipt Date: 20040929
  Transmission Date: 20050328
  Serious: Yes (Hospitalization)
  Sender: FDA-Public Use
  Company Number: 200413613FR

PATIENT
  Age: 75 Year
  Sex: Male

DRUGS (8)
  1. ACETAMINOPHEN W/ PROPOXYPHENE HCL [Suspect]
     Indication: BACK PAIN
     Route: 048
     Dates: start: 20030618, end: 20040215
  2. ACETAMINOPHEN W/ PROPOXYPHENE HCL [Suspect]
     Indication: BONE PAIN
     Route: 048
     Dates: start: 20030618, end: 20040215
  3. FUROSEMIDE [Suspect]
     Route: 048
  4. ALDACTONE [Suspect]
     Route: 048
  5. MUCOMYST [Suspect]
     Indication: UPPER RESPIRATORY TRACT INFECTION
     Route: 048
     Dates: start: 20040201, end: 20040208
  6. CELEBREX [Suspect]
     Indication: BACK PAIN
     Route: 048
     Dates: start: 20030618, end: 20040215
  7. CELEBREX [Suspect]
     Indication: BONE PAIN
     Route: 048
     Dates: start: 20030618, end: 20040215
  8. ALFATIL [Suspect]
     Indication: UPPER RESPIRATORY TRACT INFECTION
     Route: 048
     Dates: start: 20040201, end: 20040208

REACTIONS (4)
  - ECZEMA [None]
  - PERNICIOUS ANAEMIA [None]
  - PRURITUS [None]
  - TOXIC SKIN ERUPTION [None]
